FAERS Safety Report 25232954 (Version 1)
Quarter: 2025Q2

REPORT INFORMATION
  Report Type: Spontaneous
  Country: US (occurrence: US)
  Receive Date: 20250424
  Receipt Date: 20250424
  Transmission Date: 20250716
  Serious: No
  Sender: MERCK SHARP & DOHME LLC
  Company Number: US-009507513-2278822

PATIENT
  Age: 68 Year
  Sex: Male

DRUGS (13)
  1. JANUVIA [Suspect]
     Active Substance: SITAGLIPTIN PHOSPHATE
     Route: 048
  2. CABOMETYX [Suspect]
     Active Substance: CABOZANTINIB S-MALATE
     Indication: Renal cancer
     Dosage: 40MG QD
     Route: 048
     Dates: start: 20250204
  3. ELIQUIS [Concomitant]
     Active Substance: APIXABAN
  4. EZETIMIBE [Concomitant]
     Active Substance: EZETIMIBE
  5. JARDIANCE [Concomitant]
     Active Substance: EMPAGLIFLOZIN
  6. MEDROL [Concomitant]
     Active Substance: METHYLPREDNISOLONE
  7. VITAMIN C [Concomitant]
     Active Substance: ASCORBIC ACID
  8. ALLOPURINOL [Concomitant]
     Active Substance: ALLOPURINOL
  9. AMOXICILLIN AND CLAVULANATE POTASSIUM [Concomitant]
     Active Substance: AMOXICILLIN\CLAVULANATE POTASSIUM
  10. VITAMINS [Concomitant]
     Active Substance: VITAMINS
  11. MIDODRINE [Concomitant]
     Active Substance: MIDODRINE
  12. POTASSIUM CHLORIDE [Concomitant]
     Active Substance: POTASSIUM CHLORIDE
  13. RYBELSUS [Concomitant]
     Active Substance: SEMAGLUTIDE

REACTIONS (1)
  - Skin disorder [Unknown]
